FAERS Safety Report 4287998-X (Version None)
Quarter: 2004Q1

REPORT INFORMATION
  Report Type: 
  Country: None (occurrence: None)
  Receive Date: 20040209
  Receipt Date: 20031112
  Transmission Date: 20041129
  Serious: No
  Sender: FDA-Public Use
  Company Number: US-GLAXOSMITHKLINE-A0439447A

PATIENT
  Age: 63 Year
  Sex: Male

DRUGS (3)
  1. PAXIL [Suspect]
     Indication: DEPRESSION
     Dosage: 37.5MG PER DAY
     Route: 048
     Dates: start: 20030501
  2. TUMS [Concomitant]
  3. MYLANTA [Concomitant]

REACTIONS (3)
  - ARRHYTHMIA [None]
  - CHEST PAIN [None]
  - TREMOR [None]
